FAERS Safety Report 7451762-0 (Version None)
Quarter: 2011Q2

REPORT INFORMATION
  Report Type: 
  Country: None (occurrence: None)
  Receive Date: 20110502
  Receipt Date: 20110425
  Transmission Date: 20111010
  Serious: Yes (Other)
  Sender: FDA-Public Use
  Company Number: ES-PFIZER INC-2011089396

PATIENT
  Age: 33 Year
  Sex: Female

DRUGS (6)
  1. MEROPENEM [Suspect]
     Indication: ABDOMINAL SEPSIS
     Dosage: 1 G, 3X/DAY
     Route: 042
     Dates: start: 20101106, end: 20101121
  2. ZYVOX [Concomitant]
     Indication: ABDOMINAL SEPSIS
     Dosage: 0.6 G, 2X/DAY
     Route: 042
     Dates: start: 20101114, end: 20101117
  3. DAPTOMYCIN [Concomitant]
     Indication: ABDOMINAL SEPSIS
     Dosage: 250 MG, 1X/DAY
     Route: 042
     Dates: start: 20101112, end: 20101117
  4. ECALTA [Suspect]
     Indication: ABDOMINAL SEPSIS
     Dosage: 100 MG, 1X/DAY
     Route: 042
     Dates: start: 20101112, end: 20101121
  5. CIPROFLOXACIN [Suspect]
     Indication: ABDOMINAL SEPSIS
     Dosage: 0.4 G, 3X/DAY
     Route: 042
     Dates: start: 20101112, end: 20101121
  6. PARACETAMOL [Concomitant]
     Indication: PAIN
     Dosage: 1 G, 4X/DAY
     Route: 042
     Dates: start: 20101103

REACTIONS (1)
  - HEPATITIS CHOLESTATIC [None]
